FAERS Safety Report 6896755-7 (Version None)
Quarter: 2010Q3

REPORT INFORMATION
  Report Type: 
  Country: None (occurrence: None)
  Receive Date: 20100802
  Receipt Date: 20070219
  Transmission Date: 20110219
  Serious: No
  Sender: FDA-Public Use
  Company Number: US-PFIZER INC-2006151981

PATIENT
  Sex: Male
  Weight: 97.52 kg

DRUGS (4)
  1. LYRICA [Suspect]
     Indication: DIABETIC NEUROPATHY
     Dates: start: 20060901
  2. GLIPIZIDE [Concomitant]
  3. ASPIRIN [Concomitant]
  4. ZOCOR [Concomitant]

REACTIONS (3)
  - ABDOMINAL PAIN UPPER [None]
  - BLOOD GLUCOSE INCREASED [None]
  - DRUG INEFFECTIVE [None]
